FAERS Safety Report 19065138 (Version 1)
Quarter: 2021Q1

REPORT INFORMATION
  Report Type: Spontaneous
  Country: TR (occurrence: TR)
  Receive Date: 20210327
  Receipt Date: 20210327
  Transmission Date: 20210420
  Serious: Yes (Hospitalization, Other)
  Sender: FDA-Public Use
  Company Number: TR-LUPIN PHARMACEUTICALS INC.-2021-03773

PATIENT
  Age: 34 Year
  Sex: Male
  Weight: 84 kg

DRUGS (3)
  1. HYDROXYCHLOROQUINE [Suspect]
     Active Substance: HYDROXYCHLOROQUINE
     Indication: COVID-19
     Dosage: 200 MILLIGRAM, BID
     Route: 065
     Dates: start: 2020, end: 2020
  2. FAVIPIRAVIR [Suspect]
     Active Substance: FAVIPIRAVIR
     Indication: COVID-19
     Dosage: 600 MILLIGRAM, BID
     Route: 065
     Dates: start: 2020, end: 2020
  3. AZITHROMYCIN ANHYDROUS. [Suspect]
     Active Substance: AZITHROMYCIN ANHYDROUS
     Indication: COVID-19
     Dosage: 250 MILLIGRAM, QD
     Route: 065
     Dates: start: 2020, end: 2020

REACTIONS (3)
  - Off label use [Unknown]
  - Hypoglycaemia [Recovering/Resolving]
  - Impaired quality of life [Recovering/Resolving]

NARRATIVE: CASE EVENT DATE: 2020
